FAERS Safety Report 9473701 (Version 3)
Quarter: 2013Q3

REPORT INFORMATION
  Report Type: Spontaneous
  Country: US (occurrence: US)
  Receive Date: 20130823
  Receipt Date: 20130910
  Transmission Date: 20140515
  Serious: No
  Sender: FDA-Public Use
  Company Number: US-009507513-1308USA010323

PATIENT
  Sex: Female

DRUGS (1)
  1. CLARITIN-D-24 [Suspect]
     Indication: NASAL CONGESTION
     Dosage: 10 MG, ONCE
     Route: 048
     Dates: start: 20130814

REACTIONS (3)
  - Feeling jittery [Not Recovered/Not Resolved]
  - Palpitations [Unknown]
  - Malaise [Unknown]
